FAERS Safety Report 4299055-7 (Version None)
Quarter: 2004Q1

REPORT INFORMATION
  Report Type: 
  Country: None (occurrence: None)
  Receive Date: 20040217
  Receipt Date: 20040203
  Transmission Date: 20041129
  Serious: Yes (Other)
  Sender: FDA-Public Use
  Company Number: HQWYE803803FEB04

PATIENT
  Age: 15 Year
  Sex: Male

DRUGS (3)
  1. EFFEXOR [Suspect]
     Dosage: ORAL
     Route: 048
  2. PAXIL [Suspect]
  3. ZOLOFT [Suspect]

REACTIONS (12)
  - ABNORMAL BEHAVIOUR [None]
  - AGGRESSION [None]
  - DEPRESSION [None]
  - DIABETES MELLITUS [None]
  - FEELING ABNORMAL [None]
  - HOMICIDAL IDEATION [None]
  - HYPERTENSION [None]
  - INSOMNIA [None]
  - NIGHTMARE [None]
  - SELF INJURIOUS BEHAVIOUR [None]
  - SUICIDAL IDEATION [None]
  - SUICIDE ATTEMPT [None]
